FAERS Safety Report 16331982 (Version 1)
Quarter: 2019Q2

REPORT INFORMATION
  Report Type: Spontaneous
  Country: US (occurrence: US)
  Receive Date: 20190520
  Receipt Date: 20190520
  Transmission Date: 20190711
  Serious: No
  Sender: FDA-Public Use
  Company Number: US-TEVA-2018-US-966597

PATIENT
  Age: 52 Year
  Sex: Male

DRUGS (4)
  1. SALINE [Concomitant]
     Active Substance: SODIUM CHLORIDE
     Dosage: 20CC FLUSH AFTER EVERY INFUSION
     Route: 041
  2. PEMETREXED. [Suspect]
     Active Substance: PEMETREXED
     Indication: LUNG ADENOCARCINOMA
     Dosage: FIRST CYCLE ADMINISTERED IV THROUGH LEFT FOREARM AND SECOND CYCLE ADMINISTERED IV THROUGH RIGHT F...
     Route: 041
  3. CARBOPLATIN. [Concomitant]
     Active Substance: CARBOPLATIN
     Indication: LUNG ADENOCARCINOMA
     Route: 050
  4. CISPLATIN. [Suspect]
     Active Substance: CISPLATIN
     Indication: LUNG ADENOCARCINOMA
     Dosage: FIRST CYCLE ADMINISTERED IV THROUGH LEFT FOREARM AND SECOND CYCLE ADMINISTERED IV THROUGH RIGHT F...
     Route: 041

REACTIONS (1)
  - Skin hyperpigmentation [Unknown]
